FAERS Safety Report 8275056-9 (Version None)
Quarter: 2012Q2

REPORT INFORMATION
  Report Type: 
  Country: None (occurrence: None)
  Receive Date: 20120411
  Receipt Date: 20120405
  Transmission Date: 20120825
  Serious: Yes (Other)
  Sender: FDA-Public Use
  Company Number: CHPA2012IL006332

PATIENT
  Sex: Male

DRUGS (2)
  1. OTRIVIN [Suspect]
     Indication: NASAL CONGESTION
     Route: 045
  2. OTRIVIN [Suspect]
     Indication: NASOPHARYNGITIS

REACTIONS (1)
  - DRUG DEPENDENCE [None]
